FAERS Safety Report 4819628-X (Version None)
Quarter: 2005Q4

REPORT INFORMATION
  Report Type: 
  Country: None (occurrence: None)
  Receive Date: 20051101
  Receipt Date: 20051101
  Transmission Date: 20060501
  Serious: Yes (Hospitalization)
  Sender: FDA-Public Use
  Company Number: None

PATIENT
  Age: 57 Year
  Sex: Male
  Weight: 137 kg

DRUGS (1)
  1. DILANTIN [Suspect]
     Indication: CONVULSION
     Dosage: 500 MG QHS
     Dates: start: 20050701

REACTIONS (3)
  - LIVER FUNCTION TEST ABNORMAL [None]
  - PYREXIA [None]
  - RASH PRURITIC [None]
